FAERS Safety Report 26204906 (Version 1)
Quarter: 2025Q4

REPORT INFORMATION
  Report Type: Spontaneous
  Country: GB (occurrence: GB)
  Receive Date: 20251227
  Receipt Date: 20251227
  Transmission Date: 20260119
  Serious: Yes (Other)
  Sender: DR REDDYS
  Company Number: None

PATIENT
  Age: 92 Year
  Sex: Female
  Weight: 76 kg

DRUGS (9)
  1. RIVAROXABAN [Suspect]
     Active Substance: RIVAROXABAN
     Indication: Ill-defined disorder
     Dosage: TPP YC - PLEASE RECLASSIFY
     Dates: start: 20251217
  2. POLYETHYLENE GLYCOL 3350\POTASSIUM CHLORIDE\SODIUM BICARBONATE\SODIUM [Concomitant]
     Active Substance: POLYETHYLENE GLYCOL 3350\POTASSIUM CHLORIDE\SODIUM BICARBONATE\SODIUM CHLORIDE
     Indication: Ill-defined disorder
     Dosage: MIX ONE TO THREE SACHETS WITH WATER ONCE DAILY ..., TPP YC - PLEASE RECLASSIFY
     Dates: start: 20251106, end: 20251118
  3. ATORVASTATIN [Concomitant]
     Active Substance: ATORVASTATIN
     Indication: Ill-defined disorder
     Dosage: TAKE ONE DAILY, TPP YC - PLEASE RECLASSIFY
     Dates: start: 20250912
  4. EDOXABAN [Concomitant]
     Active Substance: EDOXABAN
     Indication: Ill-defined disorder
     Dosage: 1 DAILY, TPP YC - PLEASE RECLASSIFY
     Dates: start: 20250912
  5. EXEMESTANE [Concomitant]
     Active Substance: EXEMESTANE
     Indication: Ill-defined disorder
     Dosage: TAKE ONE ONCE DAILY, TPP YC - PLEASE RECLASSIFY
     Dates: start: 20250912
  6. FUROSEMIDE [Concomitant]
     Active Substance: FUROSEMIDE
     Indication: Ill-defined disorder
     Dosage: TAKE ONE EACH MORNING, TPP YC - PLEASE RECLASSIFY
     Dates: start: 20250912
  7. LOSARTAN [Concomitant]
     Active Substance: LOSARTAN
     Indication: Ill-defined disorder
     Dosage: TAKE ONE DAILY WITH A 50MG TABLET, TPP YC - PLEASE RECLASSIFY
     Dates: start: 20250912
  8. RIVAROXABAN [Concomitant]
     Active Substance: RIVAROXABAN
     Indication: Ill-defined disorder
     Dosage: TAKE ONE DAILY WITH FOOD, TPP YC - PLEASE RECLASSIFY
     Dates: start: 20251103, end: 20251216
  9. AMLODIPINE [Concomitant]
     Active Substance: AMLODIPINE BESYLATE
     Indication: Ill-defined disorder
     Dosage: TAKE ONE DAILY FOR BLOOD PRESSURE, TPP YC - PLEASE RECLASSIFY
     Dates: start: 20251211

REACTIONS (1)
  - Retinal artery occlusion [Recovered/Resolved with Sequelae]

NARRATIVE: CASE EVENT DATE: 20251217
